FAERS Safety Report 5908898-2 (Version None)
Quarter: 2008Q4

REPORT INFORMATION
  Report Type: 
  Country: None (occurrence: None)
  Receive Date: 20081001
  Receipt Date: 20080915
  Transmission Date: 20090506
  Serious: No
  Sender: FDA-Public Use
  Company Number: 8037085

PATIENT
  Age: 85 Year

DRUGS (1)
  1. KEPPRA [Suspect]
     Dosage: 500 MG 2/D
     Dates: start: 20080911

REACTIONS (1)
  - UNEVALUABLE EVENT [None]
